FAERS Safety Report 11715503 (Version 2)
Quarter: 2015Q4

REPORT INFORMATION
  Report Type: Spontaneous
  Country: US (occurrence: US)
  Receive Date: 20151104
  Receipt Date: 20151110
  Transmission Date: 20160304
  Serious: No
  Sender: FDA-Public Use
  Company Number: US-ELI_LILLY_AND_COMPANY-US201109002909

PATIENT
  Age: 56 Year
  Sex: Female
  Weight: 69.39 kg

DRUGS (3)
  1. FORTEO [Suspect]
     Active Substance: TERIPARATIDE
     Indication: OSTEOPOROSIS
     Dosage: 20 UG, QD
     Route: 065
     Dates: start: 201106
  2. ESTROGEN [Concomitant]
     Active Substance: ESTRONE\SUS SCROFA OVARY
  3. CELEBREX [Concomitant]
     Active Substance: CELECOXIB

REACTIONS (7)
  - Arthritis [Unknown]
  - Speech disorder [Unknown]
  - Fall [Recovered/Resolved]
  - Loose tooth [Not Recovered/Not Resolved]
  - Photosensitivity reaction [Unknown]
  - Body height decreased [Not Recovered/Not Resolved]
  - Weight increased [Not Recovered/Not Resolved]

NARRATIVE: CASE EVENT DATE: 201108
